FAERS Safety Report 24844755 (Version 1)
Quarter: 2025Q1

REPORT INFORMATION
  Report Type: Spontaneous
  Country: CN (occurrence: CN)
  Receive Date: 20250115
  Receipt Date: 20250115
  Transmission Date: 20250409
  Serious: Yes (Other)
  Sender: MERCK
  Company Number: CN-009507513-2501CHN003028

PATIENT
  Age: 69 Year
  Sex: Female
  Weight: 70 kg

DRUGS (3)
  1. CILASTATIN SODIUM\IMIPENEM [Suspect]
     Active Substance: CILASTATIN SODIUM\IMIPENEM
     Indication: Pneumonia
     Dosage: 0.5G, QID
     Route: 041
     Dates: start: 20241218, end: 20241229
  2. PERAMIVIR [Suspect]
     Active Substance: PERAMIVIR
     Indication: Infection
     Dosage: 0.3G, QD
     Route: 041
     Dates: start: 20241217, end: 20241226
  3. VORICONAZOLE [Suspect]
     Active Substance: VORICONAZOLE
     Indication: Infection
     Dosage: 0.2G, QD
     Route: 041
     Dates: start: 20241220, end: 20241231

REACTIONS (4)
  - Anaemia [Unknown]
  - Tachycardia [Unknown]
  - Confusional state [Unknown]
  - Cyanosis [Unknown]

NARRATIVE: CASE EVENT DATE: 20241226
